FAERS Safety Report 17750237 (Version 5)
Quarter: 2020Q2

REPORT INFORMATION
  Report Type: Spontaneous
  Country: US (occurrence: US)
  Receive Date: 20200506
  Receipt Date: 20200618
  Transmission Date: 20200714
  Serious: No
  Sender: FDA-Public Use
  Company Number: US-PFIZER INC-2020181280

PATIENT
  Age: 62 Year
  Sex: Male

DRUGS (1)
  1. SUTENT [Suspect]
     Active Substance: SUNITINIB MALATE
     Indication: RENAL CANCER
     Dosage: 50 MG, CYCLIC, (ONCE DAILY FOR 4 WEEKS, THEN 2 WEEKS REST)
     Route: 048
     Dates: start: 202004

REACTIONS (11)
  - Renal pain [Unknown]
  - Fatigue [Not Recovered/Not Resolved]
  - Swollen tear duct [Unknown]
  - Skin lesion [Recovering/Resolving]
  - Arthritis [Recovering/Resolving]
  - Peripheral swelling [Not Recovered/Not Resolved]
  - Anal fissure [Not Recovered/Not Resolved]
  - Blister [Not Recovered/Not Resolved]
  - Constipation [Not Recovered/Not Resolved]
  - Hyperkeratosis [Not Recovered/Not Resolved]
  - Muscle contractions involuntary [Not Recovered/Not Resolved]

NARRATIVE: CASE EVENT DATE: 2020
